FAERS Safety Report 19996428 (Version 1)
Quarter: 2021Q4

REPORT INFORMATION
  Report Type: Spontaneous
  Country: US (occurrence: US)
  Receive Date: 20211026
  Receipt Date: 20211026
  Transmission Date: 20220303
  Serious: No
  Sender: FDA-Public Use
  Company Number: US-PFIZER INC-202101190525

PATIENT
  Age: 58 Year
  Sex: Female

DRUGS (1)
  1. XELJANZ XR [Suspect]
     Active Substance: TOFACITINIB CITRATE
     Indication: Rheumatoid arthritis
     Dosage: 11 MG, DAILY
     Route: 048
     Dates: start: 20210730

REACTIONS (6)
  - Drug ineffective [Unknown]
  - Arthritis [Unknown]
  - Arthralgia [Unknown]
  - Mobility decreased [Unknown]
  - Discouragement [Unknown]
  - Depressed mood [Unknown]

NARRATIVE: CASE EVENT DATE: 20210101
